FAERS Safety Report 6166636-5 (Version None)
Quarter: 2009Q2

REPORT INFORMATION
  Report Type: 
  Country: None (occurrence: None)
  Receive Date: 20090424
  Receipt Date: 20090415
  Transmission Date: 20091009
  Serious: Yes (Death)
  Sender: FDA-Public Use
  Company Number: US-TYCO HEALTHCARE/MALLINCKRODT-T200900833

PATIENT
  Age: 75 Year
  Sex: Male
  Weight: 68.027 kg

DRUGS (2)
  1. TEMAZEPAM [Suspect]
  2. XANAX [Suspect]

REACTIONS (3)
  - COMPLETED SUICIDE [None]
  - DRUG LEVEL BELOW THERAPEUTIC [None]
  - DRUG SCREEN POSITIVE [None]
